FAERS Safety Report 17308038 (Version 2)
Quarter: 2022Q2

REPORT INFORMATION
  Report Type: Spontaneous
  Country: US (occurrence: US)
  Receive Date: 20200123
  Receipt Date: 20220414
  Transmission Date: 20220720
  Serious: Yes (Death, Other)
  Sender: FDA-Public Use
  Company Number: US-SUN PHARMACEUTICAL INDUSTRIES LTD-2020R1-233238

PATIENT
  Age: 59 Year
  Sex: Male

DRUGS (1)
  1. PREDNISONE [Suspect]
     Active Substance: PREDNISONE
     Indication: Sarcoidosis
     Dosage: UNK
     Route: 065

REACTIONS (1)
  - Cryptococcosis [Fatal]
